FAERS Safety Report 4652057-0 (Version None)
Quarter: 2005Q2

REPORT INFORMATION
  Report Type: 
  Country: None (occurrence: None)
  Receive Date: 20050502
  Receipt Date: 20050502
  Transmission Date: 20051028
  Serious: Yes (Other)
  Sender: FDA-Public Use
  Company Number: None

PATIENT
  Sex: Male
  Weight: 91.6266 kg

DRUGS (18)
  1. ZOLMITRIPTAN   2.5MG [Suspect]
     Indication: MIGRAINE
     Dosage: 2.5MG   AT ONSET OF HA    ORAL
     Route: 048
     Dates: start: 20050110, end: 20050214
  2. CLONIDINE HCL [Concomitant]
  3. DESONIDE 0.05% CREAM [Concomitant]
  4. DM 10/GUAIFENESEN [Concomitant]
  5. FELODIPINE [Concomitant]
  6. FORMOTEROL FUMARATE [Concomitant]
  7. HCTZ 50/TRIAMTERENE [Concomitant]
  8. HYDROCORTISONE [Concomitant]
  9. KETOCONAZOLE [Concomitant]
  10. LORATADINE [Concomitant]
  11. METHYLPHENIDATE HCL [Concomitant]
  12. MONTELUKAST NA [Concomitant]
  13. OMEPRAZOLE [Concomitant]
  14. POTASSIUM CITRATE [Concomitant]
  15. SALMETEROL [Concomitant]
  16. SERTRALINE HCL [Concomitant]
  17. TERAZOSIN HCL [Concomitant]
  18. VITAMIN E [Concomitant]

REACTIONS (2)
  - PAIN [None]
  - TRISMUS [None]
